FAERS Safety Report 6558614-9 (Version None)
Quarter: 2010Q1

REPORT INFORMATION
  Report Type: 
  Country: None (occurrence: None)
  Receive Date: 20100128
  Receipt Date: 20100128
  Transmission Date: 20100710
  Serious: No
  Sender: FDA-Public Use
  Company Number: None

PATIENT
  Age: 56 Year
  Sex: Female
  Weight: 81.6475 kg

DRUGS (1)
  1. OMNARIS [Suspect]
     Indication: SINUSITIS
     Dosage: ONE SPRAY IN EACH NOSTRIL TWICE DAILY OTHER
     Route: 050
     Dates: start: 20100125, end: 20100126

REACTIONS (3)
  - FEELING ABNORMAL [None]
  - HEADACHE [None]
  - INSOMNIA [None]
